FAERS Safety Report 24086145 (Version 1)
Quarter: 2024Q3

REPORT INFORMATION
  Report Type: Report from Study
  Country: US (occurrence: US)
  Receive Date: 20240712
  Receipt Date: 20240712
  Transmission Date: 20241017
  Serious: Yes (Hospitalization, Other)
  Sender: AURINIA PHARMACEUTICALS
  Company Number: US-OTSUKA PHARMACEUTICAL NETHERLANDS B.V.-AUR-004600

PATIENT
  Age: 26 Year
  Sex: Female

DRUGS (4)
  1. LUPKYNIS [Suspect]
     Active Substance: VOCLOSPORIN
     Indication: Lupus nephritis
     Dosage: 15.8 MILLIGRAM, BID
     Route: 048
     Dates: start: 20220820
  2. LUPKYNIS [Suspect]
     Active Substance: VOCLOSPORIN
     Dosage: 7.9 MILLIGRAM, BID
     Route: 048
     Dates: end: 20240201
  3. LUPKYNIS [Suspect]
     Active Substance: VOCLOSPORIN
     Dosage: 15.8 MILLIGRAM, BID
     Route: 048
     Dates: start: 20220820
  4. CELLCEPT [Concomitant]
     Active Substance: MYCOPHENOLATE MOFETIL
     Indication: Product used for unknown indication
     Dosage: 500 MILLIGRAM, TID
     Route: 048

REACTIONS (12)
  - Focal dyscognitive seizures [Unknown]
  - Cerebrovascular accident [Unknown]
  - Cardiac tamponade [Unknown]
  - Pericardial effusion [Unknown]
  - Acute kidney injury [Unknown]
  - Renal impairment [Unknown]
  - Scar [Not Recovered/Not Resolved]
  - Proteinuria [Unknown]
  - Condition aggravated [Unknown]
  - Hypertension [Unknown]
  - Herpes zoster [Recovered/Resolved]
  - Treatment noncompliance [Unknown]

NARRATIVE: CASE EVENT DATE: 20240108
